FAERS Safety Report 13485662 (Version 1)
Quarter: 2017Q2

REPORT INFORMATION
  Report Type: Spontaneous
  Country: US (occurrence: US)
  Receive Date: 20170425
  Receipt Date: 20170425
  Transmission Date: 20170830
  Serious: No
  Sender: FDA-Public Use
  Company Number: US-PFIZER INC-2017114283

PATIENT
  Sex: Male

DRUGS (6)
  1. EPINEPHRINE. [Suspect]
     Active Substance: EPINEPHRINE
     Indication: EYE IRRIGATION
  2. VANCOMYCIN HCL [Suspect]
     Active Substance: VANCOMYCIN HYDROCHLORIDE
     Indication: CATARACT
     Dosage: 10 MG, SINGLE (ONE TIME)
     Route: 031
     Dates: start: 20170207, end: 20170207
  3. BSS [Suspect]
     Active Substance: CALCIUM CHLORIDE\MAGNESIUM CHLORIDE\POTASSIUM CHLORIDE\SODIUM ACETATE\SODIUM CHLORIDE\SODIUM CITRATE
     Indication: CATARACT
     Dosage: UNK UNK, SINGLE (ONE TIME)
     Route: 031
     Dates: start: 20170207, end: 20170207
  4. VANCOMYCIN HCL [Suspect]
     Active Substance: VANCOMYCIN HYDROCHLORIDE
     Indication: EYE IRRIGATION
  5. EPINEPHRINE. [Suspect]
     Active Substance: EPINEPHRINE
     Indication: CATARACT
     Dosage: 0.4 ML, SINGLE (ONE TIME)
     Route: 031
     Dates: start: 20170207, end: 20170207
  6. BSS [Suspect]
     Active Substance: CALCIUM CHLORIDE\MAGNESIUM CHLORIDE\POTASSIUM CHLORIDE\SODIUM ACETATE\SODIUM CHLORIDE\SODIUM CITRATE
     Indication: EYE IRRIGATION

REACTIONS (3)
  - Circumstance or information capable of leading to medication error [Recovered/Resolved]
  - Vision blurred [Recovered/Resolved]
  - Product quality issue [Recovered/Resolved]

NARRATIVE: CASE EVENT DATE: 20170207
